FAERS Safety Report 9844988 (Version 1)
Quarter: 2014Q1

REPORT INFORMATION
  Report Type: Spontaneous
  Country: US (occurrence: None)
  Receive Date: 20140123
  Receipt Date: 20140123
  Transmission Date: 20141002
  Serious: Yes (Hospitalization, Disabling)
  Sender: FDA-Public Use
  Company Number: None

PATIENT
  Age: 78 Year
  Sex: Female
  Weight: 69.4 kg

DRUGS (1)
  1. BENICAR [Suspect]
     Indication: HYPERTENSION
     Route: 048
     Dates: start: 20130117, end: 20140116

REACTIONS (9)
  - Fatigue [None]
  - Nausea [None]
  - Abdominal distension [None]
  - Decreased appetite [None]
  - Gastroenteritis viral [None]
  - Vomiting [None]
  - Diarrhoea [None]
  - Hypotension [None]
  - Lactose intolerance [None]
